FAERS Safety Report 6204035-8 (Version None)
Quarter: 2009Q2

REPORT INFORMATION
  Report Type: 
  Country: None (occurrence: None)
  Receive Date: 20090526
  Receipt Date: 20090526
  Transmission Date: 20091009
  Serious: Yes (Other)
  Sender: FDA-Public Use
  Company Number: None

PATIENT
  Sex: Male
  Weight: 102.0593 kg

DRUGS (3)
  1. MYCOPHENOLATE MOFETIL [Suspect]
     Indication: HEART TRANSPLANT
     Dosage: 60 BID PO 7 DOSES
     Route: 048
     Dates: start: 20090518, end: 20090521
  2. PROGRAF [Concomitant]
  3. POTASSIUM CHLORIDE [Concomitant]

REACTIONS (5)
  - BALANCE DISORDER [None]
  - DIZZINESS [None]
  - HEADACHE [None]
  - PRODUCT SUBSTITUTION ISSUE [None]
  - URINE ODOUR ABNORMAL [None]
